FAERS Safety Report 6448044-2 (Version None)
Quarter: 2009Q4

REPORT INFORMATION
  Report Type: 
  Country: None (occurrence: None)
  Receive Date: 20091120
  Receipt Date: 20091113
  Transmission Date: 20100525
  Serious: Yes (Other)
  Sender: FDA-Public Use
  Company Number: US-ASTRAZENECA-2009UW03705

PATIENT
  Age: 504 Month
  Sex: Female
  Weight: 113.4 kg

DRUGS (6)
  1. SEROQUEL [Suspect]
     Indication: SLEEP DISORDER
     Route: 048
     Dates: start: 19980801
  2. SEROQUEL [Suspect]
     Indication: BIPOLAR DISORDER
     Route: 048
     Dates: start: 19980801
  3. SEROQUEL [Suspect]
     Indication: MANIA
     Route: 048
     Dates: start: 19980801
  4. ABILIFY [Concomitant]
     Dates: start: 20050301
  5. RISPERDAL [Concomitant]
     Dates: start: 20050301
  6. ZYPREXA [Concomitant]
     Dates: start: 20050301

REACTIONS (6)
  - CEREBRAL HAEMORRHAGE [None]
  - CONFUSIONAL STATE [None]
  - DEMENTIA [None]
  - TYPE 1 DIABETES MELLITUS [None]
  - TYPE 2 DIABETES MELLITUS [None]
  - WEIGHT INCREASED [None]
